FAERS Safety Report 8976218 (Version 1)
Quarter: 2012Q4

REPORT INFORMATION
  Report Type: 
  Country: EC (occurrence: EC)
  Receive Date: 20121220
  Receipt Date: 20121220
  Transmission Date: 20130627
  Serious: Yes (Hospitalization)
  Sender: FDA-Public Use
  Company Number: PHHY2012EC117569

PATIENT
  Sex: Male

DRUGS (2)
  1. EXFORGE [Suspect]
     Indication: HYPERTENSION
     Dosage: 1 DF, (160 mg vals and 5 mg amlo)
     Route: 048
     Dates: end: 201110
  2. EXFORGE [Suspect]
     Dosage: 1 DF, QD (160 mg vals and 10 mg amlo)
     Route: 048
     Dates: start: 201110

REACTIONS (1)
  - Cataract [Not Recovered/Not Resolved]
